FAERS Safety Report 18377036 (Version 2)
Quarter: 2020Q4

REPORT INFORMATION
  Report Type: Spontaneous
  Country: JP (occurrence: JP)
  Receive Date: 20201013
  Receipt Date: 20201124
  Transmission Date: 20210114
  Serious: Yes (Other)
  Sender: FDA-Public Use
  Company Number: JP-GLAXOSMITHKLINE-JP2020JPN199268

PATIENT
  Age: 50 Year
  Sex: Male
  Weight: 36 kg

DRUGS (5)
  1. ACYCLOVIR. [Suspect]
     Active Substance: ACYCLOVIR
     Indication: VARICELLA
     Dosage: 750 MG
     Route: 042
  2. CEFTRIAXONE SODIUM. [Concomitant]
     Active Substance: CEFTRIAXONE SODIUM
     Indication: PNEUMONIA BACTERIAL
     Dosage: UNK
  3. ACYCLOVIR. [Suspect]
     Active Substance: ACYCLOVIR
     Dosage: 1000 MG
     Route: 042
  4. ACYCLOVIR. [Suspect]
     Active Substance: ACYCLOVIR
     Dosage: 500 MG
     Route: 042
  5. LEVOFLOXACIN HEMIHYDRATE [Suspect]
     Active Substance: LEVOFLOXACIN
     Dosage: UNK

REACTIONS (10)
  - Cell-mediated immune deficiency [Unknown]
  - Hepatitis viral [Unknown]
  - Hepatic function abnormal [Unknown]
  - Cardiomegaly [Unknown]
  - Pleural effusion [Unknown]
  - Pulmonary oedema [Unknown]
  - Respiratory failure [Recovering/Resolving]
  - Granulocytopenia [Unknown]
  - Blister [Unknown]
  - Cardiac failure [Unknown]
